FAERS Safety Report 9358380 (Version 1)
Quarter: 2013Q2

REPORT INFORMATION
  Report Type: Spontaneous
  Country: US (occurrence: None)
  Receive Date: 20130619
  Receipt Date: 20130619
  Transmission Date: 20140414
  Serious: Yes (Other)
  Sender: FDA-Public Use
  Company Number: None

PATIENT
  Age: 33 Year
  Sex: Female
  Weight: 58.97 kg

DRUGS (2)
  1. CLARAVIS [Suspect]
     Indication: ACNE CYSTIC
     Route: 048
     Dates: start: 20130415, end: 20130617
  2. ISOTRETINOIN [Concomitant]

REACTIONS (2)
  - Pregnancy [None]
  - Exposure during pregnancy [None]
